FAERS Safety Report 16744559 (Version 1)
Quarter: 2019Q3

REPORT INFORMATION
  Report Type: Spontaneous
  Country: US (occurrence: US)
  Receive Date: 20190709
  Receipt Date: 20190709
  Transmission Date: 20191005
  Serious: No
  Sender: FDA-Public Use
  Company Number: None

PATIENT
  Age: 77 Year
  Sex: Female

DRUGS (1)
  1. TASIGNA [Suspect]
     Active Substance: NILOTINIB
     Indication: CHRONIC MYELOID LEUKAEMIA
     Route: 048
     Dates: start: 20190616

REACTIONS (7)
  - Poor quality sleep [None]
  - Muscle spasms [None]
  - Pruritus generalised [None]
  - Dyspnoea [None]
  - Bone pain [None]
  - Fatigue [None]
  - Product label confusion [None]

NARRATIVE: CASE EVENT DATE: 201906
